FAERS Safety Report 24133830 (Version 3)
Quarter: 2024Q3

REPORT INFORMATION
  Report Type: Spontaneous
  Country: US (occurrence: US)
  Receive Date: 20240724
  Receipt Date: 20240814
  Transmission Date: 20241016
  Serious: Yes (Other)
  Sender: NOVARTIS
  Company Number: US-002147023-NVSC2024US151150

PATIENT
  Sex: Female

DRUGS (1)
  1. COSENTYX [Suspect]
     Active Substance: SECUKINUMAB
     Indication: Product used for unknown indication
     Dosage: UNK
     Route: 065

REACTIONS (6)
  - Psoriatic arthropathy [Unknown]
  - Autoimmune disorder [Unknown]
  - Spinal disorder [Unknown]
  - Pain [Unknown]
  - Fatigue [Unknown]
  - Product dose omission issue [Unknown]
